FAERS Safety Report 12961056 (Version 1)
Quarter: 2016Q4

REPORT INFORMATION
  Report Type: Report from Study
  Country: US (occurrence: US)
  Receive Date: 20161121
  Receipt Date: 20161121
  Transmission Date: 20170207
  Serious: Yes (Death, Other)
  Sender: FDA-Public Use
  Company Number: US-GILEAD-2016-0243828

PATIENT
  Age: 79 Year
  Sex: Female

DRUGS (14)
  1. ALBUTEROL                          /00139501/ [Concomitant]
     Active Substance: ALBUTEROL
  2. FUROSEMIDE. [Concomitant]
     Active Substance: FUROSEMIDE
  3. AZTREONAM LYSINE [Suspect]
     Active Substance: AZTREONAM LYSINE
     Indication: CHRONIC OBSTRUCTIVE PULMONARY DISEASE
     Dosage: 75 MG, TID, EVERY OTHER MONTH
     Route: 055
     Dates: start: 20160526, end: 20161101
  4. NIFEDIPINE. [Concomitant]
     Active Substance: NIFEDIPINE
  5. LOSARTAN. [Concomitant]
     Active Substance: LOSARTAN
  6. PREDNISONE. [Concomitant]
     Active Substance: PREDNISONE
  7. ACETYLCYSTEINE. [Concomitant]
     Active Substance: ACETYLCYSTEINE
  8. PRAVASTATIN. [Concomitant]
     Active Substance: PRAVASTATIN
  9. CETIRIZINE [Concomitant]
     Active Substance: CETIRIZINE HYDROCHLORIDE
  10. GLIPIZIDE. [Concomitant]
     Active Substance: GLIPIZIDE
  11. HUMALOG MIX [Concomitant]
     Active Substance: INSULIN LISPRO
  12. OMEPRAZOLE. [Concomitant]
     Active Substance: OMEPRAZOLE
  13. CARVEDILOL. [Concomitant]
     Active Substance: CARVEDILOL
  14. GABAPENTIN. [Concomitant]
     Active Substance: GABAPENTIN

REACTIONS (2)
  - Off label use [Unknown]
  - Death [Fatal]

NARRATIVE: CASE EVENT DATE: 20160526
